FAERS Safety Report 8973393 (Version 1)
Quarter: 2012Q4

REPORT INFORMATION
  Report Type: 
  Country: JP (occurrence: JP)
  Receive Date: 20121219
  Receipt Date: 20121219
  Transmission Date: 20130627
  Serious: Yes (Hospitalization, Other)
  Sender: FDA-Public Use
  Company Number: JP-SANOFI-AVENTIS-2012SA092545

PATIENT
  Age: 72 Year
  Sex: Male

DRUGS (11)
  1. FLUOROURACIL [Suspect]
     Indication: MALIGNANT TONGUE CANCER
     Route: 065
     Dates: start: 200908, end: 200908
  2. FLUOROURACIL [Suspect]
     Indication: MALIGNANT TONGUE CANCER
     Route: 065
     Dates: start: 200904, end: 200904
  3. CISPLATIN [Suspect]
     Indication: MALIGNANT TONGUE CANCER
     Route: 065
     Dates: start: 200903, end: 200904
  4. CISPLATIN [Suspect]
     Indication: MALIGNANT TONGUE CANCER
     Route: 065
     Dates: start: 200904, end: 200904
  5. CISPLATIN [Suspect]
     Indication: MALIGNANT TONGUE CANCER
     Route: 065
     Dates: start: 200908, end: 200908
  6. DOCETAXEL [Suspect]
     Indication: MALIGNANT TONGUE CANCER
     Route: 065
     Dates: start: 200904, end: 200904
  7. DOCETAXEL [Suspect]
     Indication: MALIGNANT TONGUE CANCER
     Route: 065
     Dates: start: 200908, end: 200908
  8. I.V. SOLUTIONS [Concomitant]
     Dosage: pre-hydration
  9. I.V. SOLUTIONS [Concomitant]
     Dosage: post-hydration
  10. TS-1 [Concomitant]
     Dates: start: 200905
  11. HYPNOTICS AND SEDATIVES [Concomitant]
     Route: 042

REACTIONS (7)
  - Hyperammonaemia [Recovered/Resolved]
  - Vomiting [Recovered/Resolved]
  - Hypophagia [Recovered/Resolved]
  - Blood urea increased [Recovered/Resolved]
  - Altered state of consciousness [Recovered/Resolved]
  - Neutrophil count decreased [Recovered/Resolved]
  - Nausea [Unknown]
